FAERS Safety Report 5744362-1 (Version None)
Quarter: 2008Q2

REPORT INFORMATION
  Report Type: 
  Country: None (occurrence: None)
  Receive Date: 20080516
  Receipt Date: 20080502
  Transmission Date: 20081010
  Serious: Yes (Hospitalization)
  Sender: FDA-Public Use
  Company Number: 2008AL003237

PATIENT
  Sex: Male

DRUGS (1)
  1. DIGOXIN                   (AMIDE) [Suspect]

REACTIONS (2)
  - DIZZINESS [None]
  - FALL [None]
